FAERS Safety Report 14983733 (Version 1)
Quarter: 2018Q2

REPORT INFORMATION
  Report Type: Spontaneous
  Country: FR (occurrence: FR)
  Receive Date: 20180607
  Receipt Date: 20180607
  Transmission Date: 20180711
  Serious: Yes (Hospitalization, Other)
  Sender: FDA-Public Use
  Company Number: FR-JNJFOC-20180531108

PATIENT
  Age: 84 Year
  Sex: Male

DRUGS (2)
  1. PREDNISONE. [Concomitant]
     Active Substance: PREDNISONE
     Route: 065
  2. ZYTIGA [Suspect]
     Active Substance: ABIRATERONE ACETATE
     Indication: HORMONE-REFRACTORY PROSTATE CANCER
     Route: 048

REACTIONS (7)
  - Off label use [Unknown]
  - Product use in unapproved indication [Unknown]
  - Transcription medication error [Unknown]
  - Adrenal insufficiency [Unknown]
  - Incorrect dose administered [Unknown]
  - Surgery [Unknown]
  - Anaemia [Unknown]
